FAERS Safety Report 19304544 (Version 1)
Quarter: 2021Q2

REPORT INFORMATION
  Report Type: Spontaneous
  Country: US (occurrence: US)
  Receive Date: 20210526
  Receipt Date: 20210526
  Transmission Date: 20210717
  Serious: No
  Sender: FDA-Public Use
  Company Number: US-BLUEPRINT MEDICINES CORPORATION-SP-US-2021-000669

PATIENT
  Sex: Male

DRUGS (1)
  1. AYVAKIT [Suspect]
     Active Substance: AVAPRITINIB
     Indication: GASTROINTESTINAL STROMAL TUMOUR
     Route: 048
     Dates: start: 20200217

REACTIONS (6)
  - Urinary incontinence [Unknown]
  - Back pain [Unknown]
  - Pollakiuria [Unknown]
  - Drug ineffective [Unknown]
  - Pulmonary mass [Unknown]
  - Pain in extremity [Unknown]
